FAERS Safety Report 6128957-1 (Version None)
Quarter: 2009Q1

REPORT INFORMATION
  Report Type: 
  Country: None (occurrence: None)
  Receive Date: 20090324
  Receipt Date: 20090313
  Transmission Date: 20090719
  Serious: Yes (Other)
  Sender: FDA-Public Use
  Company Number: PHHY2009CH09286

PATIENT
  Age: 76 Year
  Sex: Male

DRUGS (7)
  1. TRILEPTAL [Suspect]
     Indication: TRIGEMINAL NEURALGIA
     Dosage: 600 MG/D
     Dates: start: 20040101, end: 20081201
  2. NEXIUM [Suspect]
     Dosage: 20 MG/D
     Dates: start: 20081101
  3. DAFALGAN [Suspect]
     Dosage: UNK
     Dates: start: 20081101
  4. BRUFEN [Suspect]
     Dosage: UNK
     Dates: start: 20081101
  5. CLEXANE [Suspect]
     Dosage: UNK
     Route: 058
     Dates: start: 20081101, end: 20081101
  6. ZOFRAN [Suspect]
     Dosage: UNK
     Dates: start: 20081101
  7. CALCIMAGON [Concomitant]
     Dosage: UNK

REACTIONS (3)
  - IRIDOCYCLITIS [None]
  - MYOPIA [None]
  - VISUAL ACUITY REDUCED [None]
